FAERS Safety Report 18086436 (Version 1)
Quarter: 2020Q3

REPORT INFORMATION
  Report Type: Spontaneous
  Country: US (occurrence: US)
  Receive Date: 20200728
  Receipt Date: 20200728
  Transmission Date: 20201103
  Serious: No
  Sender: FDA-Public Use
  Company Number: None

PATIENT
  Age: 42 Year
  Sex: Male
  Weight: 67.5 kg

DRUGS (6)
  1. AIMOVIG [Suspect]
     Active Substance: ERENUMAB-AOOE
     Indication: MIGRAINE
     Dosage: ?          QUANTITY:1 INJECTION(S);OTHER FREQUENCY:MONTHLY;?
     Route: 030
  2. PROBIOTIC [Concomitant]
     Active Substance: PROBIOTICS NOS
  3. FROVATRIPTAN. [Concomitant]
     Active Substance: FROVATRIPTAN
  4. VITAMIN D [Concomitant]
     Active Substance: VITAMIN D NOS
  5. NURTEC ODT [Concomitant]
     Active Substance: RIMEGEPANT SULFATE
  6. MIRALAX [Concomitant]
     Active Substance: POLYETHYLENE GLYCOL 3350

REACTIONS (1)
  - Alopecia [None]

NARRATIVE: CASE EVENT DATE: 20200601
